FAERS Safety Report 21181837 (Version 1)
Quarter: 2022Q3

REPORT INFORMATION
  Report Type: Spontaneous
  Country: US (occurrence: US)
  Receive Date: 20220806
  Receipt Date: 20220806
  Transmission Date: 20221026
  Serious: No
  Sender: FDA-Public Use
  Company Number: US-JNJFOC-20220804475

PATIENT

DRUGS (1)
  1. TREMFYA [Suspect]
     Active Substance: GUSELKUMAB
     Indication: Product used for unknown indication
     Dosage: WEEK 0 THEN WEEK 4 THEN EVERY 8 WEEKS THEREAFTER.
     Route: 065

REACTIONS (3)
  - Product administration error [Unknown]
  - Product dose omission issue [Unknown]
  - Product quality issue [Unknown]
